FAERS Safety Report 24920048 (Version 1)
Quarter: 2025Q1

REPORT INFORMATION
  Report Type: Report from Study
  Country: US (occurrence: US)
  Receive Date: 20250204
  Receipt Date: 20250204
  Transmission Date: 20250409
  Serious: No
  Sender: EXELIXIS
  Company Number: US-EXELIXIS-CABO-24072755

PATIENT
  Sex: Female

DRUGS (1)
  1. CABOMETYX [Suspect]
     Active Substance: CABOZANTINIB S-MALATE
     Indication: Illness
     Dosage: 40 MG, QD
     Route: 048
     Dates: start: 202312

REACTIONS (5)
  - Hot flush [Unknown]
  - Vision blurred [Unknown]
  - Abdominal pain upper [Unknown]
  - Diarrhoea [Unknown]
  - Feeling cold [Unknown]
